FAERS Safety Report 17338844 (Version 1)
Quarter: 2020Q1

REPORT INFORMATION
  Report Type: Spontaneous
  Country: US (occurrence: US)
  Receive Date: 20200129
  Receipt Date: 20200129
  Transmission Date: 20200409
  Serious: Yes (Death, Hospitalization)
  Sender: FDA-Public Use
  Company Number: US-JNJFOC-20200134485

PATIENT
  Age: 49 Year
  Sex: Female

DRUGS (1)
  1. PARACETAMOL [Suspect]
     Active Substance: ACETAMINOPHEN
     Indication: PAIN
     Dosage: 2-3 TABLETS EVERY 4-6 HOURS
     Route: 048

REACTIONS (13)
  - Splenic infarction [Fatal]
  - Blood lactate dehydrogenase increased [Fatal]
  - Acute respiratory distress syndrome [Fatal]
  - Pneumonia aspiration [Fatal]
  - Blood lactic acid increased [Fatal]
  - Completed suicide [Fatal]
  - Pancreatitis [Fatal]
  - Ammonia increased [Fatal]
  - Small intestinal obstruction [Fatal]
  - Liver function test increased [Fatal]
  - Hypoglycaemia [Fatal]
  - Toxicity to various agents [Fatal]
  - Brain oedema [Fatal]
